FAERS Safety Report 13334567 (Version 7)
Quarter: 2017Q3

REPORT INFORMATION
  Report Type: Report from Study
  Country: US (occurrence: US)
  Receive Date: 20170314
  Receipt Date: 20170705
  Transmission Date: 20171127
  Serious: Yes (Other)
  Sender: FDA-Public Use
  Company Number: US-PFIZER INC-2016557055

PATIENT
  Age: 66 Year
  Sex: Female

DRUGS (6)
  1. IBRANCE [Suspect]
     Active Substance: PALBOCICLIB
     Dosage: 75 MG, CYCLIC (EVERY OTHER DAY UNTIL MEDICATION IS GONE FOR 21 DAY, THEN 1 WEEK OFF)
     Route: 048
     Dates: start: 20170203, end: 20170428
  2. IBRANCE [Suspect]
     Active Substance: PALBOCICLIB
     Indication: BREAST CANCER
     Dosage: 125 MG, CYCLIC (DAILY FOR 3 WEEKS ON) WITH FOOD
     Route: 048
     Dates: start: 20161117, end: 20161229
  3. IBRANCE [Suspect]
     Active Substance: PALBOCICLIB
     Dosage: 125 MG, CYCLIC (DAILY FOR 21 DAYS, OFF 7 THEN REPEAT)
     Route: 048
     Dates: start: 20161117, end: 20170104
  4. IBRANCE [Suspect]
     Active Substance: PALBOCICLIB
     Dosage: 100 MG, CYCLIC (DAILY FOR 3 WEEKS ON THEN ONE WEEK OFF/ DAILY FOR 21 DAYS, OFF 7 THEN REPEAT)
     Route: 048
     Dates: start: 20170105, end: 20170202
  5. IBRANCE [Suspect]
     Active Substance: PALBOCICLIB
     Dosage: 75 MG, CYCLIC (DAILY FOR 3 WEEKS ON)
     Route: 048
     Dates: start: 20170203, end: 20170428
  6. IBRANCE [Suspect]
     Active Substance: PALBOCICLIB
     Dosage: 75 MG, CYCLIC (EVERY OTHER DAY/ EVERY OTHER DAY FOR TOTAL OF 5 DOSES EVERY 21 DAYS)
     Route: 048
     Dates: start: 20170603, end: 20170611

REACTIONS (22)
  - Increased appetite [Unknown]
  - Renal impairment [Unknown]
  - Oropharyngeal pain [Unknown]
  - Abdominal pain [Unknown]
  - Hepatic function abnormal [Recovered/Resolved]
  - Dyspnoea [Recovering/Resolving]
  - Liver function test increased [Unknown]
  - Dizziness [Not Recovered/Not Resolved]
  - Alopecia [Unknown]
  - Fatigue [Not Recovered/Not Resolved]
  - Hypersensitivity [Unknown]
  - Blood creatinine increased [Not Recovered/Not Resolved]
  - Decreased appetite [Not Recovered/Not Resolved]
  - Sinusitis [Unknown]
  - Weight decreased [Unknown]
  - Cough [Unknown]
  - Nasopharyngitis [Unknown]
  - Nausea [Unknown]
  - Arthralgia [Not Recovered/Not Resolved]
  - Hepatic enzyme increased [Unknown]
  - Pruritus [Unknown]
  - Pain in extremity [Not Recovered/Not Resolved]

NARRATIVE: CASE EVENT DATE: 2016
